FAERS Safety Report 17150144 (Version 1)
Quarter: 2019Q4

REPORT INFORMATION
  Report Type: Spontaneous
  Country: PL (occurrence: PL)
  Receive Date: 20191213
  Receipt Date: 20191213
  Transmission Date: 20200122
  Serious: Yes (Other)
  Sender: FDA-Public Use
  Company Number: PL-SA-2019SA342966

PATIENT
  Age: 42 Year
  Sex: Female
  Weight: 60 kg

DRUGS (3)
  1. AUBAGIO [Suspect]
     Active Substance: TERIFLUNOMIDE
     Indication: MULTIPLE SCLEROSIS
     Dosage: 14 MG
     Route: 048
     Dates: start: 20180521, end: 20180909
  2. EUTHYROX [Concomitant]
     Active Substance: LEVOTHYROXINE SODIUM
     Indication: HYPOTHYROIDISM
     Dosage: 25 MG
     Route: 048
     Dates: start: 2018, end: 201906
  3. MESTINON [Concomitant]
     Active Substance: PYRIDOSTIGMINE BROMIDE
     Indication: MUSCULAR WEAKNESS
     Dosage: 1-3 DF
     Route: 048
     Dates: start: 1998

REACTIONS (1)
  - Leukopenia [Unknown]

NARRATIVE: CASE EVENT DATE: 20180620
